FAERS Safety Report 16171403 (Version 2)
Quarter: 2019Q2

REPORT INFORMATION
  Report Type: Spontaneous
  Country: JP (occurrence: JP)
  Receive Date: 20190408
  Receipt Date: 20190426
  Transmission Date: 20190711
  Serious: Yes (Other)
  Sender: FDA-Public Use
  Company Number: JP-SHIRE-JP201832767AA

PATIENT
  Age: 78 Year
  Sex: Female

DRUGS (13)
  1. FEBURIC [Concomitant]
     Active Substance: FEBUXOSTAT
     Indication: PRODUCT USED FOR UNKNOWN INDICATION
     Dosage: 20 MG, 1X/DAY:QD
     Route: 065
  2. AGRYLIN [Suspect]
     Active Substance: ANAGRELIDE HYDROCHLORIDE
     Dosage: 1.0 MG, 2X/DAY:BID
     Route: 048
     Dates: start: 20171212, end: 20180318
  3. HYDREA [Concomitant]
     Active Substance: HYDROXYUREA
     Dosage: 500 MG, 2X/ 3 DAYS
     Route: 065
     Dates: start: 20091026
  4. AGRYLIN [Suspect]
     Active Substance: ANAGRELIDE HYDROCHLORIDE
     Indication: ESSENTIAL THROMBOCYTHAEMIA
     Dosage: 0.5 MG, 3X/DAY:TID
     Route: 048
     Dates: start: 20171031, end: 20171211
  5. HYDREA [Concomitant]
     Active Substance: HYDROXYUREA
     Indication: ESSENTIAL THROMBOCYTHAEMIA
     Dosage: 500 MG, EVERY 3 DAYS
     Route: 065
     Dates: start: 20091026
  6. AMLODIPINE                         /00972402/ [Concomitant]
     Active Substance: AMLODIPINE BESYLATE
     Indication: PRODUCT USED FOR UNKNOWN INDICATION
     Dosage: 2.5 MG, 1X/DAY:QD
     Route: 065
  7. BAYASPIRIN [Concomitant]
     Active Substance: ASPIRIN
     Indication: ERYTHROMELALGIA
     Dosage: 100 MG, 1X/DAY:QD
     Route: 065
  8. POTOREND [Concomitant]
     Indication: PRODUCT USED FOR UNKNOWN INDICATION
     Dosage: 3 DF, 3X/DAY:TID
     Route: 065
  9. AGRYLIN [Suspect]
     Active Substance: ANAGRELIDE HYDROCHLORIDE
     Dosage: 2.0 MG, 2X/DAY:BID
     Route: 048
     Dates: start: 20180423, end: 20180821
  10. AGRYLIN [Suspect]
     Active Substance: ANAGRELIDE HYDROCHLORIDE
     Dosage: 1.5 MG, 2X/DAY:BID
     Route: 048
     Dates: start: 20180319, end: 20180422
  11. AGRYLIN [Suspect]
     Active Substance: ANAGRELIDE HYDROCHLORIDE
     Dosage: 1.0 MG, 2X/DAY:BID
     Route: 048
     Dates: start: 20180822
  12. HYDREA [Concomitant]
     Active Substance: HYDROXYUREA
     Dosage: 500 MG, 2X/DAY:BID(3 DAYS)
     Route: 065
  13. NESP [Concomitant]
     Active Substance: DARBEPOETIN ALFA
     Indication: PRODUCT USED FOR UNKNOWN INDICATION
     Dosage: UNK
     Dates: start: 20180702

REACTIONS (7)
  - Muscular weakness [Unknown]
  - Nausea [Unknown]
  - Palpitations [Recovering/Resolving]
  - Erythromelalgia [Recovering/Resolving]
  - Anaemia [Recovering/Resolving]
  - Renal impairment [Not Recovered/Not Resolved]
  - Headache [Recovered/Resolved]

NARRATIVE: CASE EVENT DATE: 201712
